FAERS Safety Report 5182413-6 (Version None)
Quarter: 2006Q4

REPORT INFORMATION
  Report Type: 
  Country: None (occurrence: None)
  Receive Date: 20061220
  Receipt Date: 20060906
  Transmission Date: 20070319
  Serious: No
  Sender: FDA-Public Use
  Company Number: US-GLAXOSMITHKLINE-A0619157A

PATIENT
  Age: 45 Year

DRUGS (1)
  1. COMMIT [Suspect]

REACTIONS (5)
  - EAR PAIN [None]
  - GINGIVAL PAIN [None]
  - ORAL PAIN [None]
  - PAIN [None]
  - PAIN IN JAW [None]
